FAERS Safety Report 4294845-9 (Version None)
Quarter: 2004Q1

REPORT INFORMATION
  Report Type: 
  Country: None (occurrence: None)
  Receive Date: 20040216
  Receipt Date: 20030122
  Transmission Date: 20041129
  Serious: No
  Sender: FDA-Public Use
  Company Number: US-GLAXOSMITHKLINE-A0393558A

PATIENT
  Age: 55 Year
  Sex: Female
  Weight: 72.7 kg

DRUGS (2)
  1. LAMICTAL [Suspect]
     Route: 048
     Dates: start: 20021126
  2. CONCURRENT MEDICATIONS [Concomitant]

REACTIONS (2)
  - HYPERTENSION [None]
  - NEUROPATHY [None]
